FAERS Safety Report 8004854-1 (Version None)
Quarter: 2011Q4

REPORT INFORMATION
  Report Type: 
  Country: None (occurrence: None)
  Receive Date: 20111220
  Receipt Date: 20111207
  Transmission Date: 20120403
  Serious: Yes (Hospitalization)
  Sender: FDA-Public Use
  Company Number: 2011AL000096

PATIENT
  Age: 56 Year
  Sex: Female
  Weight: 65 kg

DRUGS (2)
  1. BEXAROTENE [Suspect]
     Indication: MYCOSIS FUNGOIDES
     Dosage: 150 MG/M**2;QD;PO
     Route: 048
     Dates: start: 20111117, end: 20111206
  2. PRALATREXATE (PRALATREXATE) [Suspect]
     Indication: MYCOSIS FUNGOIDES
     Dosage: 15 MG/M**2;QW;IV
     Route: 042
     Dates: start: 20111117, end: 20111201

REACTIONS (1)
  - BODY TEMPERATURE FLUCTUATION [None]
